FAERS Safety Report 7120785-3 (Version None)
Quarter: 2010Q4

REPORT INFORMATION
  Report Type: 
  Country: None (occurrence: None)
  Receive Date: 20101124
  Receipt Date: 20101115
  Transmission Date: 20110411
  Serious: Yes (Death, Life-Threatening, Hospitalization)
  Sender: FDA-Public Use
  Company Number: FR-CELGENEUS-056-C5013-07100997

PATIENT
  Sex: Male
  Weight: 106 kg

DRUGS (11)
  1. CC-5013 [Suspect]
     Indication: MULTIPLE MYELOMA
     Route: 048
     Dates: start: 20070605, end: 20070723
  2. CC-5013 [Suspect]
     Route: 048
     Dates: start: 20070731, end: 20070926
  3. SOLUTIONS FOR PARENTERAL NUTRITION [Concomitant]
     Route: 051
  4. PREVISCAN [Concomitant]
     Indication: DEEP VEIN THROMBOSIS
     Route: 048
  5. VALSARTAN  AND HYDROCHLOROTHIAZIDE [Concomitant]
     Indication: HYPERTENSION
     Route: 048
  6. ATENOLOL [Concomitant]
     Indication: HYPERTENSION
     Route: 065
  7. LERCANIDIPINE [Concomitant]
     Indication: ESSENTIAL HYPERTENSION
     Route: 065
  8. LERCANIDIPINE [Concomitant]
     Indication: PROPHYLAXIS
  9. NEXIUM [Concomitant]
     Indication: PROPHYLAXIS
     Route: 048
  10. ZYLORIC [Concomitant]
     Indication: HYPERURICAEMIA
     Route: 048
  11. NEURONTIN [Concomitant]
     Route: 065

REACTIONS (1)
  - OESOPHAGEAL CARCINOMA [None]
